FAERS Safety Report 12536969 (Version 1)
Quarter: 2016Q3

REPORT INFORMATION
  Report Type: Spontaneous
  Country: US (occurrence: US)
  Receive Date: 20160707
  Receipt Date: 20160707
  Transmission Date: 20161109
  Serious: Yes (Life-Threatening, Other)
  Sender: FDA-Public Use
  Company Number: US-MALLINCKRODT-T201602813

PATIENT
  Age: 46 Year
  Sex: Female

DRUGS (5)
  1. INOMAX [Suspect]
     Active Substance: NITRIC OXIDE
     Dosage: 40 PPM
     Dates: start: 201606
  2. INOMAX [Suspect]
     Active Substance: NITRIC OXIDE
     Indication: PULMONARY HYPERTENSION
     Dosage: 30 PPM
     Dates: start: 20160617, end: 201606
  3. LEVOPHED [Concomitant]
     Active Substance: NOREPINEPHRINE BITARTRATE
     Dosage: UNK
     Dates: start: 201606, end: 20160627
  4. LEVOPHED [Concomitant]
     Active Substance: NOREPINEPHRINE BITARTRATE
     Dosage: INCREASED TO 7 MCG/KG
     Dates: start: 20160627
  5. VASOPRESSIN. [Concomitant]
     Active Substance: VASOPRESSIN
     Dosage: 0.06 MCG/KG
     Dates: start: 201606

REACTIONS (5)
  - Cardiac arrest [Recovered/Resolved]
  - Off label use [Not Recovered/Not Resolved]
  - Blood pressure decreased [Recovered/Resolved]
  - Drug ineffective for unapproved indication [None]
  - Device issue [Unknown]

NARRATIVE: CASE EVENT DATE: 201606
